FAERS Safety Report 4749541-8 (Version None)
Quarter: 2005Q3

REPORT INFORMATION
  Report Type: 
  Country: None (occurrence: None)
  Receive Date: 20050822
  Receipt Date: 20050811
  Transmission Date: 20060218
  Serious: Yes (Hospitalization)
  Sender: FDA-Public Use
  Company Number: FR-JNJFOC-20050803286

PATIENT
  Age: 60 Year
  Sex: Male

DRUGS (1)
  1. PROPULSID [Suspect]
     Route: 048
     Dates: start: 20020101

REACTIONS (1)
  - BREAST NEOPLASM MALE [None]
